FAERS Safety Report 6449260-6 (Version None)
Quarter: 2009Q4

REPORT INFORMATION
  Report Type: 
  Country: None (occurrence: None)
  Receive Date: 20091120
  Receipt Date: 20091117
  Transmission Date: 20100525
  Serious: Yes (Life-Threatening, Hospitalization)
  Sender: FDA-Public Use
  Company Number: US-GILEAD-2009-0025258

PATIENT
  Sex: Male
  Weight: 62.7 kg

DRUGS (4)
  1. TRUVADA [Suspect]
     Indication: HIV INFECTION
  2. NEVIRAPINE [Suspect]
     Indication: HIV INFECTION
  3. COTRIMOXAZOLE [Concomitant]
     Dates: start: 20090516, end: 20090804
  4. FLUCONAZOLE [Concomitant]
     Dates: start: 20090516, end: 20090804

REACTIONS (1)
  - ANAEMIA [None]
